FAERS Safety Report 5618942-8 (Version None)
Quarter: 2008Q1

REPORT INFORMATION
  Report Type: 
  Country: None (occurrence: None)
  Receive Date: 20080207
  Receipt Date: 20080130
  Transmission Date: 20080703
  Serious: Yes (Other)
  Sender: FDA-Public Use
  Company Number: PHBS2007JP11466

PATIENT
  Age: 59 Year
  Sex: Male

DRUGS (5)
  1. CYCLOSPORINE [Suspect]
     Indication: RENAL TRANSPLANT
     Dosage: UNK, UNK
     Route: 065
     Dates: start: 20061018
  2. SULFAMETHOXAZOLE AND TRIMETHOPRIM [Suspect]
  3. MYCOPHENOLATE MOFETIL [Suspect]
     Indication: RENAL TRANSPLANT
  4. METHYLPREDNISOLONE [Suspect]
     Indication: RENAL TRANSPLANT
  5. SIMULECT [Suspect]
     Indication: RENAL TRANSPLANT
     Route: 042

REACTIONS (11)
  - BIOPSY KIDNEY [None]
  - BIOPSY LUNG ABNORMAL [None]
  - BLOOD CREATININE INCREASED [None]
  - BRONCHOSCOPY ABNORMAL [None]
  - COMPUTERISED TOMOGRAM ABNORMAL [None]
  - KIDNEY TRANSPLANT REJECTION [None]
  - LUNG DISORDER [None]
  - LUNG INFECTION [None]
  - NOCARDIOSIS [None]
  - RENAL IMPAIRMENT [None]
  - RENAL TUBULAR DISORDER [None]
